FAERS Safety Report 6312014-5 (Version None)
Quarter: 2009Q3

REPORT INFORMATION
  Report Type: 
  Country: None (occurrence: None)
  Receive Date: 20090817
  Receipt Date: 20090807
  Transmission Date: 20100115
  Serious: Yes (Hospitalization, Other)
  Sender: FDA-Public Use
  Company Number: PHHY2009ZA23576

PATIENT
  Sex: Male
  Weight: 71 kg

DRUGS (2)
  1. VOLTAREN [Suspect]
     Indication: PAIN
     Dosage: 75MG/3ML AMPOULE
     Route: 030
     Dates: start: 20090102
  2. VOLTAREN [Suspect]
     Indication: BACK PAIN

REACTIONS (8)
  - BACK PAIN [None]
  - INJECTION SITE EXTRAVASATION [None]
  - INJECTION SITE NECROSIS [None]
  - INJECTION SITE PRURITUS [None]
  - INJECTION SITE ULCER [None]
  - OSTEOPOROSIS [None]
  - SPINAL COMPRESSION FRACTURE [None]
  - WOUND [None]
